FAERS Safety Report 7418384-9 (Version None)
Quarter: 2011Q2

REPORT INFORMATION
  Report Type: 
  Country: None (occurrence: None)
  Receive Date: 20110415
  Receipt Date: 20110412
  Transmission Date: 20111010
  Serious: Yes (Other)
  Sender: FDA-Public Use
  Company Number: D0070693A

PATIENT
  Sex: Female

DRUGS (2)
  1. MARCUMAR [Concomitant]
     Route: 065
  2. ARIXTRA [Suspect]
     Route: 065

REACTIONS (3)
  - QUADRIPLEGIA [None]
  - SPINAL EPIDURAL HAEMORRHAGE [None]
  - CEREBRAL HAEMORRHAGE [None]
